FAERS Safety Report 24933785 (Version 1)
Quarter: 2025Q1

REPORT INFORMATION
  Report Type: Report from Study
  Country: CA (occurrence: CA)
  Receive Date: 20250206
  Receipt Date: 20250206
  Transmission Date: 20250409
  Serious: Yes (Other)
  Sender: EXELIXIS
  Company Number: CA-IPSEN Group, Research and Development-2024-03336

PATIENT
  Sex: Male

DRUGS (15)
  1. CABOMETYX [Suspect]
     Active Substance: CABOZANTINIB S-MALATE
     Indication: Renal cell carcinoma
     Dosage: 40 MG, QD
     Route: 048
     Dates: start: 20230207, end: 202402
  2. ATORVASTATIN [Concomitant]
     Active Substance: ATORVASTATIN
  3. BISOPROLOL [Concomitant]
     Active Substance: BISOPROLOL
  4. ENTRESTO [Concomitant]
     Active Substance: SACUBITRIL\VALSARTAN
  5. PANTOPRAZOLE SODIUM [Concomitant]
     Active Substance: PANTOPRAZOLE SODIUM
  6. AMIODARONE [Concomitant]
     Active Substance: AMIODARONE
  7. AMLODIPINE [Concomitant]
     Active Substance: AMLODIPINE BESYLATE
  8. SPIRONOLACTONE [Concomitant]
     Active Substance: SPIRONOLACTONE
  9. TYLENOL [Concomitant]
     Active Substance: ACETAMINOPHEN
  10. HYDROMORPHONE [Concomitant]
     Active Substance: HYDROMORPHONE
  11. XARELTO [Concomitant]
     Active Substance: RIVAROXABAN
  12. PROCHLORPERAZINE [Concomitant]
     Active Substance: PROCHLORPERAZINE
  13. LOPERAMIDE [Concomitant]
     Active Substance: LOPERAMIDE
  14. UREA [Concomitant]
     Active Substance: UREA
  15. MOUTH WASH [Concomitant]

REACTIONS (1)
  - Malignant neoplasm progression [Unknown]
